FAERS Safety Report 8516561-7 (Version None)
Quarter: 2012Q3

REPORT INFORMATION
  Report Type: 
  Country: None (occurrence: None)
  Receive Date: 20120711
  Receipt Date: 20120711
  Transmission Date: 20120928
  Serious: Yes (Other)
  Sender: FDA-Public Use
  Company Number: None

PATIENT
  Sex: Female

DRUGS (1)
  1. PENNSAID [Suspect]
     Indication: ARTHRALGIA
     Dosage: 40 DROPS 4 TIMES A DAY TOPICAL
     Route: 061
     Dates: start: 20120627, end: 20120706

REACTIONS (1)
  - SKIN EXFOLIATION [None]
